FAERS Safety Report 17160027 (Version 2)
Quarter: 2019Q4

REPORT INFORMATION
  Report Type: Spontaneous
  Country: JP (occurrence: JP)
  Receive Date: 20191216
  Receipt Date: 20191219
  Transmission Date: 20200122
  Serious: Yes (Death, Hospitalization)
  Sender: FDA-Public Use
  Company Number: JP-ELI_LILLY_AND_COMPANY-JP201911002694

PATIENT
  Age: 92 Year
  Sex: Male

DRUGS (6)
  1. PREDNISOLONE. [Suspect]
     Active Substance: PREDNISOLONE
     Indication: PEMPHIGOID
     Dosage: 40 MG, DAILY
     Route: 065
  2. INSULIN GLARGINE [Concomitant]
     Active Substance: INSULIN GLARGINE
     Route: 058
  3. HUMALOG [Concomitant]
     Active Substance: INSULIN LISPRO
     Route: 058
  4. MITIGLINIDE CALCIUM;VOGLIBOSE [Concomitant]
  5. TRULICITY [Suspect]
     Active Substance: DULAGLUTIDE
     Indication: TYPE 2 DIABETES MELLITUS
     Dosage: 0.75 MG
     Route: 058
     Dates: start: 20190502, end: 20190512
  6. RINDERON [BETAMETHASONE DIPROPIONATE] [Concomitant]
     Indication: PEMPHIGOID
     Dosage: 4 MG, DAILY
     Route: 048
     Dates: start: 20190404

REACTIONS (2)
  - Pneumocystis jirovecii pneumonia [Fatal]
  - Pneumatosis intestinalis [Unknown]

NARRATIVE: CASE EVENT DATE: 20190510
